FAERS Safety Report 9915939 (Version 1)
Quarter: 2014Q1

REPORT INFORMATION
  Report Type: Spontaneous
  Country: US (occurrence: None)
  Receive Date: 20140219
  Receipt Date: 20140219
  Transmission Date: 20141002
  Serious: Yes (Disabling)
  Sender: FDA-Public Use
  Company Number: DAV-AE-DOX-14-01

PATIENT
  Age: 44 Year
  Sex: Male

DRUGS (19)
  1. DOXAZOSIN [Suspect]
     Indication: BENIGN PROSTATIC HYPERPLASIA
     Dosage: 8MG , HS, UNKNOWN
  2. EFAVIRENZ 600MG PO QD [Concomitant]
  3. EMTRICITABINE 200MG PO QD [Concomitant]
  4. TENOFOVIR DISPROXIL 300MG PO QD [Concomitant]
  5. BOCEPREVIR 800 MG TID [Concomitant]
  6. PEG-INTERFERON ALFA-2B 120MCG SQ Q7D [Concomitant]
  7. RIBAVIRIN 400 MG QAM + 600MG QPM [Concomitant]
  8. TAMSULOSIN  0.4MG Q6H PRN NAUSEA [Concomitant]
  9. QUETIAPINE 100MG-300MG QPM [Concomitant]
  10. TESTOSTERONE CYPIONATE [Suspect]
  11. ONDANSETRON 4MG A6H PRN NAUSEA [Concomitant]
  12. ESOMEPRAZOLE 40MG QD [Concomitant]
  13. LITHIUM 1200 MG HS [Concomitant]
  14. LOSARTAN  50MG QD [Concomitant]
  15. NAPROXEN 500MG BID PRN PAIN [Concomitant]
  16. ACETAMINOPHEN/OXYCODONE 325-5MG Q6H PRN PAIN [Concomitant]
  17. LOPERAMIDE 2MG PRN DIARRHEA [Concomitant]
  18. CODEINE/GUAIFENESIN 15MG/5ML 10 ML QID PRN COUGH [Concomitant]
  19. CYCLOBENZAPRINE 10MG Q8H PRN MUSCLE SPASMS [Concomitant]

REACTIONS (2)
  - Priapism [None]
  - Drug interaction [None]
